FAERS Safety Report 6690896-5 (Version None)
Quarter: 2010Q2

REPORT INFORMATION
  Report Type: 
  Country: None (occurrence: None)
  Receive Date: 20100421
  Receipt Date: 20100412
  Transmission Date: 20101027
  Serious: Yes (Other)
  Sender: FDA-Public Use
  Company Number: PT-WYE-H14671110

PATIENT
  Age: 72 Year
  Sex: Male

DRUGS (4)
  1. CORDARONE [Suspect]
     Indication: ATRIAL FIBRILLATION
     Route: 048
  2. WARFARIN SODIUM [Concomitant]
  3. DIOVAN HCT [Concomitant]
  4. DAONIL [Concomitant]

REACTIONS (1)
  - NEUROTOXICITY [None]
